FAERS Safety Report 21483171 (Version 2)
Quarter: 2023Q2

REPORT INFORMATION
  Report Type: Report from Study
  Country: BR (occurrence: BR)
  Receive Date: 20221020
  Receipt Date: 20230406
  Transmission Date: 20230722
  Serious: Yes (Other)
  Sender: FDA-Public Use
  Company Number: BR-JNJFOC-20221031446

PATIENT
  Sex: Male
  Weight: 136 kg

DRUGS (1)
  1. INFLIXIMAB [Suspect]
     Active Substance: INFLIXIMAB
     Indication: Psoriatic arthropathy
     Route: 041
     Dates: start: 202004, end: 2021

REACTIONS (2)
  - Infusion related reaction [Recovering/Resolving]
  - COVID-19 [Recovered/Resolved]
